FAERS Safety Report 19749757 (Version 1)
Quarter: 2021Q3

REPORT INFORMATION
  Report Type: Spontaneous
  Country: US (occurrence: US)
  Receive Date: 20210826
  Receipt Date: 20210826
  Transmission Date: 20211014
  Serious: Yes (Hospitalization, Other)
  Sender: FDA-Public Use
  Company Number: None

PATIENT
  Age: 63 Year
  Sex: Female
  Weight: 76.6 kg

DRUGS (1)
  1. OCREVUS [Suspect]
     Active Substance: OCRELIZUMAB
     Indication: MULTIPLE SCLEROSIS
     Dosage: ?          OTHER FREQUENCY:TWICE A YEAR;?
     Route: 041

REACTIONS (5)
  - Varicella virus test positive [None]
  - Meningitis [None]
  - Ophthalmic herpes zoster [None]
  - Lethargy [None]
  - Unresponsive to stimuli [None]

NARRATIVE: CASE EVENT DATE: 20210824
